FAERS Safety Report 4915180-9 (Version None)
Quarter: 2006Q1

REPORT INFORMATION
  Report Type: 
  Country: None (occurrence: None)
  Receive Date: 20060216
  Receipt Date: 20060216
  Transmission Date: 20060701
  Serious: Yes (Hospitalization)
  Sender: FDA-Public Use
  Company Number: None

PATIENT
  Sex: Male
  Weight: 77.1115 kg

DRUGS (6)
  1. TYLENOL [Suspect]
     Indication: PAIN
     Dosage: PO PRIOR TO ADMISSION
     Route: 048
  2. RANITIDINE [Concomitant]
  3. LIPITOR [Concomitant]
  4. PHOSLO [Concomitant]
  5. COLCHICINE [Concomitant]
  6. PREDNISONE [Concomitant]

REACTIONS (2)
  - EYE SWELLING [None]
  - PRURITUS [None]
